FAERS Safety Report 9051976 (Version 6)
Quarter: 2014Q2

REPORT INFORMATION
  Report Type: Spontaneous
  Country: GR (occurrence: GR)
  Receive Date: 20130207
  Receipt Date: 20140408
  Transmission Date: 20141212
  Serious: Yes (Other)
  Sender: FDA-Public Use
  Company Number: GR-009507513-1302GRC000661

PATIENT
  Age: 73 Year
  Sex: Female

DRUGS (4)
  1. FOSAMAX [Suspect]
     Indication: OSTEOPOROSIS
     Dosage: UNK
     Route: 048
     Dates: start: 2010, end: 201207
  2. PROLIA [Suspect]
     Indication: OSTEOPOROSIS
     Dosage: 60 MG, Q6MO
     Route: 058
     Dates: start: 20120717
  3. GLIVEC [Suspect]
     Indication: CHRONIC MYELOID LEUKAEMIA
     Dosage: UNK
     Dates: start: 2009
  4. IMATINIB MESYLATE [Concomitant]

REACTIONS (3)
  - Sequestrectomy [Unknown]
  - Osteonecrosis of jaw [Recovered/Resolved]
  - Osteonecrosis of jaw [Recovering/Resolving]
